FAERS Safety Report 4626089-2 (Version None)
Quarter: 2005Q2

REPORT INFORMATION
  Report Type: 
  Country: None (occurrence: None)
  Receive Date: 20050404
  Receipt Date: 20041216
  Transmission Date: 20051028
  Serious: Yes (Hospitalization)
  Sender: FDA-Public Use
  Company Number: US-MERCK-0412USA02101

PATIENT
  Age: 51 Year
  Sex: Male

DRUGS (7)
  1. VIOXX [Suspect]
     Indication: OSTEOARTHRITIS
     Route: 048
     Dates: start: 20020301, end: 20020401
  2. VIOXX [Suspect]
     Indication: ARTHRITIS
     Route: 048
     Dates: start: 20020301, end: 20020401
  3. ACCUPRIL [Concomitant]
     Route: 065
  4. INSULIN [Concomitant]
     Route: 065
  5. PEPCID [Concomitant]
     Route: 065
  6. TYLENOL W/ CODEINE NO. 3 [Concomitant]
     Indication: PAIN
     Route: 048
     Dates: start: 20020301
  7. AMOXICILLIN [Concomitant]
     Route: 048
     Dates: start: 20020301, end: 20020310

REACTIONS (13)
  - BACK PAIN [None]
  - BRUXISM [None]
  - CEREBROVASCULAR ACCIDENT [None]
  - DIABETIC NEUROPATHY [None]
  - HEADACHE [None]
  - HEPATITIS C [None]
  - INTERVERTEBRAL DISC PROTRUSION [None]
  - MUSCLE SPASMS [None]
  - MUSCULOSKELETAL DISORDER [None]
  - RADICULOPATHY [None]
  - ROTATOR CUFF SYNDROME [None]
  - TENDONITIS [None]
  - TRANSIENT ISCHAEMIC ATTACK [None]
